FAERS Safety Report 6152975-0 (Version None)
Quarter: 2009Q2

REPORT INFORMATION
  Report Type: 
  Country: None (occurrence: None)
  Receive Date: 20090413
  Receipt Date: 20090406
  Transmission Date: 20091009
  Serious: Yes (Hospitalization)
  Sender: FDA-Public Use
  Company Number: A0685323A

PATIENT
  Age: 65 Year
  Sex: Female

DRUGS (2)
  1. AVANDIA [Suspect]
     Dosage: 4MG PER DAY
     Route: 048
     Dates: start: 19991201, end: 20070401
  2. PLAVIX [Concomitant]

REACTIONS (5)
  - FOOT FRACTURE [None]
  - MULTIPLE FRACTURES [None]
  - MYOCARDIAL ISCHAEMIA [None]
  - UPPER LIMB FRACTURE [None]
  - WRIST FRACTURE [None]
